FAERS Safety Report 7417106-5 (Version None)
Quarter: 2011Q2

REPORT INFORMATION
  Report Type: 
  Country: None (occurrence: None)
  Receive Date: 20110415
  Receipt Date: 20110406
  Transmission Date: 20111010
  Serious: Yes (Other)
  Sender: FDA-Public Use
  Company Number: CL-B.I. PHARMACEUTICALS,INC./RIDGEFIELD-2011-DE-02333GD

PATIENT
  Age: 52 Year
  Sex: Male

DRUGS (1)
  1. PRAMIPEXOLE DIHYDROCHLORIDE [Suspect]
     Indication: PARKINSON'S DISEASE
     Dosage: 3 MG

REACTIONS (3)
  - PATHOLOGICAL GAMBLING [None]
  - IMPULSE-CONTROL DISORDER [None]
  - COMPULSIVE SHOPPING [None]
